FAERS Safety Report 19995917 (Version 1)
Quarter: 2021Q4

REPORT INFORMATION
  Report Type: Spontaneous
  Country: US (occurrence: US)
  Receive Date: 20211025
  Receipt Date: 20211025
  Transmission Date: 20220303
  Serious: No
  Sender: FDA-Public Use
  Company Number: None

PATIENT
  Age: 69 Year
  Sex: Male
  Weight: 83.91 kg

DRUGS (1)
  1. TREMFYA [Suspect]
     Active Substance: GUSELKUMAB
     Indication: Psoriasis
     Dosage: ?          OTHER FREQUENCY:WEEK 0 AND WEEK 4;
     Route: 058
     Dates: start: 201902

REACTIONS (3)
  - Lung neoplasm malignant [None]
  - Therapy interrupted [None]
  - Unevaluable event [None]
